FAERS Safety Report 7093846-5 (Version None)
Quarter: 2010Q4

REPORT INFORMATION
  Report Type: 
  Country: None (occurrence: None)
  Receive Date: 20101110
  Receipt Date: 20101105
  Transmission Date: 20110411
  Serious: Yes (Hospitalization)
  Sender: FDA-Public Use
  Company Number: A0888962A

PATIENT
  Age: 66 Year
  Sex: Male
  Weight: 89.5 kg

DRUGS (1)
  1. LAMICTAL [Suspect]
     Dosage: 200MG UNKNOWN
     Route: 065
     Dates: start: 20091013

REACTIONS (2)
  - DEPRESSIVE SYMPTOM [None]
  - MENTAL DISORDER [None]
